FAERS Safety Report 5090491-8 (Version None)
Quarter: 2006Q3

REPORT INFORMATION
  Report Type: 
  Country: None (occurrence: None)
  Receive Date: 20060828
  Receipt Date: 20060516
  Transmission Date: 20061208
  Serious: Yes (Disabling)
  Sender: FDA-Public Use
  Company Number: US-GLAXOSMITHKLINE-A0605799A

PATIENT
  Age: 45 Year
  Sex: Male

DRUGS (2)
  1. WELLBUTRIN XL [Suspect]
     Indication: DEPRESSION
     Dosage: 150MG PER DAY
     Route: 048
     Dates: start: 20060320
  2. NO CONCURRENT MEDICATION [Concomitant]

REACTIONS (8)
  - ANXIETY [None]
  - CHEST DISCOMFORT [None]
  - CHEST PAIN [None]
  - FEELING ABNORMAL [None]
  - INSOMNIA [None]
  - NERVOUSNESS [None]
  - SOMNOLENCE [None]
  - TREMOR [None]
